FAERS Safety Report 8505875-2 (Version None)
Quarter: 2012Q3

REPORT INFORMATION
  Report Type: 
  Country: None (occurrence: None)
  Receive Date: 20120712
  Receipt Date: 20120702
  Transmission Date: 20120928
  Serious: Yes (Hospitalization)
  Sender: FDA-Public Use
  Company Number: US-ACTELION-A-NJ2012-66079

PATIENT

DRUGS (14)
  1. DELTASONE [Concomitant]
  2. ULTRAM [Concomitant]
  3. PROMETHAZINE [Concomitant]
  4. LOMOTIL [Concomitant]
  5. EPOPROSTENOL SODIUM [Suspect]
     Indication: PULMONARY ARTERIAL HYPERTENSION
     Dosage: UNK
     Route: 041
     Dates: start: 20101201
  6. ALDACTONE [Concomitant]
  7. PERCOCET [Concomitant]
  8. COUMADIN [Concomitant]
  9. CARDIZEM [Concomitant]
  10. SILDENAFIL [Concomitant]
  11. LASIX [Concomitant]
  12. CLARITIN [Concomitant]
  13. TRACLEER [Suspect]
     Indication: PULMONARY ARTERIAL HYPERTENSION
     Dosage: 125 MG, BID
     Route: 048
  14. SYNTHROID [Concomitant]

REACTIONS (6)
  - PALPITATIONS [None]
  - NAUSEA [None]
  - HYPOKALAEMIA [None]
  - DEHYDRATION [None]
  - POLYURIA [None]
  - VOMITING [None]
